FAERS Safety Report 17781891 (Version 1)
Quarter: 2020Q2

REPORT INFORMATION
  Report Type: Spontaneous
  Country: US (occurrence: US)
  Receive Date: 20200514
  Receipt Date: 20200514
  Transmission Date: 20200714
  Serious: No
  Sender: FDA-Public Use
  Company Number: US-GW PHARMA-202005USGW01710

PATIENT

DRUGS (5)
  1. EPIDIOLEX [Suspect]
     Active Substance: CANNABIDIOL
     Dosage: 20.116 MG/KG/DAY, 780 MILLIGRAM, BID
     Route: 048
     Dates: start: 20200122, end: 2020
  2. EPIDIOLEX [Suspect]
     Active Substance: CANNABIDIOL
     Indication: LENNOX-GASTAUT SYNDROME
     Dosage: INITIAL DOSE UNKNOWN
     Route: 048
  3. EPIDIOLEX [Suspect]
     Active Substance: CANNABIDIOL
     Dosage: DOSE DECREASED, UNK
     Route: 048
     Dates: start: 2020
  4. FYCOMPA [Concomitant]
     Active Substance: PERAMPANEL
     Dosage: DOSE DECREASED, UNK
     Route: 065
  5. FYCOMPA [Concomitant]
     Active Substance: PERAMPANEL
     Indication: PRODUCT USED FOR UNKNOWN INDICATION
     Dosage: UNK
     Route: 065

REACTIONS (6)
  - Weight decreased [Unknown]
  - Overdose [Recovered/Resolved]
  - Fatigue [Unknown]
  - Somnolence [Unknown]
  - Decreased appetite [Unknown]
  - Lethargy [Unknown]

NARRATIVE: CASE EVENT DATE: 202001
